FAERS Safety Report 8934523 (Version 1)
Quarter: 2012Q4

REPORT INFORMATION
  Report Type: 
  Country: US (occurrence: US)
  Receive Date: 20121129
  Receipt Date: 20121129
  Transmission Date: 20130627
  Serious: No
  Sender: FDA-Public Use
  Company Number: US-GLAXOSMITHKLINE-A0974222A

PATIENT
  Sex: Male

DRUGS (2)
  1. FLOVENT [Suspect]
     Dosage: 50MCG Unknown
     Route: 055
  2. UNSPECIFIED INGREDIENT [Suspect]

REACTIONS (2)
  - Pyrexia [Unknown]
  - Urticaria [Unknown]
